FAERS Safety Report 7042368-6 (Version None)
Quarter: 2010Q4

REPORT INFORMATION
  Report Type: 
  Country: None (occurrence: None)
  Receive Date: 20101013
  Receipt Date: 20091020
  Transmission Date: 20110411
  Serious: No
  Sender: FDA-Public Use
  Company Number: US-ASTRAZENECA-2009SE21313

PATIENT
  Age: 69 Year
  Sex: Female

DRUGS (2)
  1. SYMBICORT [Suspect]
     Indication: CHRONIC OBSTRUCTIVE PULMONARY DISEASE
     Dosage: 160/4.5 ONE PUFF ONCE A DAY
     Route: 055
     Dates: start: 20090901
  2. VENTOLIN [Concomitant]
     Dosage: ONE PUFF TWO TO FOUR TIMES A DAY

REACTIONS (2)
  - DRUG INEFFECTIVE [None]
  - DYSPNOEA [None]
